FAERS Safety Report 8460432-1 (Version None)
Quarter: 2012Q2

REPORT INFORMATION
  Report Type: 
  Country: None (occurrence: None)
  Receive Date: 20120622
  Receipt Date: 20120620
  Transmission Date: 20120825
  Serious: Yes (Death, Other)
  Sender: FDA-Public Use
  Company Number: PHHY2012US052803

PATIENT
  Age: 78 Year
  Sex: Female
  Weight: 80 kg

DRUGS (11)
  1. FISH OIL [Concomitant]
  2. TIOTROPIUM [Concomitant]
  3. PROPAFENONE HCL [Interacting]
  4. DABIGATRAN ETEXILATE [Suspect]
     Dosage: 150 MG, BID
  5. ALBUTEROL [Concomitant]
  6. DOXEPIN [Concomitant]
  7. IBANDRONATE SODIUM [Concomitant]
  8. VITAMIN D [Concomitant]
  9. ASPIRIN [Suspect]
  10. RAMIPRIL [Concomitant]
  11. FUROSEMIDE [Concomitant]

REACTIONS (10)
  - VOMITING [None]
  - INTRA-ABDOMINAL HAEMORRHAGE [None]
  - RECTAL HAEMORRHAGE [None]
  - PLEURAL HAEMORRHAGE [None]
  - DRUG INTERACTION [None]
  - SHOCK HAEMORRHAGIC [None]
  - DEPRESSED LEVEL OF CONSCIOUSNESS [None]
  - DIARRHOEA [None]
  - HYPOTENSION [None]
  - NAUSEA [None]
